FAERS Safety Report 7995931-X (Version None)
Quarter: 2011Q4

REPORT INFORMATION
  Report Type: 
  Country: None (occurrence: None)
  Receive Date: 20111220
  Receipt Date: 20111216
  Transmission Date: 20120403
  Serious: No
  Sender: FDA-Public Use
  Company Number: JP-ABBOTT-11P-087-0872178-00

PATIENT
  Sex: Female
  Weight: 67 kg

DRUGS (14)
  1. TEPRENONE [Concomitant]
     Indication: PRODUCT USED FOR UNKNOWN INDICATION
     Route: 048
     Dates: end: 20111029
  2. CLARITHROMYCIN [Suspect]
     Indication: MYCOBACTERIUM AVIUM COMPLEX INFECTION
     Route: 048
     Dates: start: 20111025, end: 20111030
  3. ANTIBIOTICS-RESISTANT LACTIC ACID BACTERIAE [Concomitant]
     Indication: DIARRHOEA
     Route: 048
     Dates: start: 20111027, end: 20111029
  4. INSULIN HUMAN [Concomitant]
     Indication: DIABETES MELLITUS
     Dosage: SLLIDING SCALE
     Route: 058
  5. ETHAMBUTOL HYDROCHLORIDE [Suspect]
     Indication: MYCOBACTERIUM AVIUM COMPLEX INFECTION
     Route: 048
     Dates: start: 20111025, end: 20111030
  6. CARBAZOCHROME SODIUM SULFONATE HYDRATE [Concomitant]
     Indication: PRODUCT USED FOR UNKNOWN INDICATION
     Route: 048
     Dates: end: 20111029
  7. TOCOPHEROL ACETATE [Concomitant]
     Indication: PRODUCT USED FOR UNKNOWN INDICATION
     Route: 048
     Dates: end: 20111029
  8. RIFAMPICIN [Suspect]
     Indication: MYCOBACTERIUM AVIUM COMPLEX INFECTION
     Dates: start: 20111025, end: 20111030
  9. KALLIDINOGENASE [Concomitant]
     Indication: PRODUCT USED FOR UNKNOWN INDICATION
     Route: 048
     Dates: end: 20111029
  10. ETIZOLAM [Concomitant]
     Indication: PRODUCT USED FOR UNKNOWN INDICATION
     Route: 048
     Dates: end: 20111029
  11. INSULIN ASPART [Concomitant]
     Indication: DIABETES MELLITUS
     Dosage: SLIDING SCALE
     Route: 058
  12. ASPIRIN/DIALUMINATE [Concomitant]
     Indication: PRODUCT USED FOR UNKNOWN INDICATION
     Route: 048
     Dates: end: 20111029
  13. CANDESARTAN CILEXETIL [Concomitant]
     Indication: PRODUCT USED FOR UNKNOWN INDICATION
     Route: 048
     Dates: end: 20111029
  14. ASCORBIC ACID/CALCIUM PANTOTHENATE [Concomitant]
     Indication: PRODUCT USED FOR UNKNOWN INDICATION
     Route: 048
     Dates: end: 20111029

REACTIONS (3)
  - APHAGIA [None]
  - DECREASED APPETITE [None]
  - MYOCLONUS [None]
